FAERS Safety Report 10697187 (Version 14)
Quarter: 2015Q4

REPORT INFORMATION
  Report Type: Report from Study
  Country: CA (occurrence: CA)
  Receive Date: 20150108
  Receipt Date: 20151029
  Transmission Date: 20160304
  Serious: Yes (Death, Hospitalization)
  Sender: FDA-Public Use
  Company Number: PHHY2014CA103832

PATIENT
  Age: 66 Year
  Sex: Female

DRUGS (4)
  1. AFINITOR [Suspect]
     Active Substance: EVEROLIMUS
     Indication: PANCREATIC NEUROENDOCRINE TUMOUR METASTATIC
     Dosage: 10 MG, QD
     Route: 048
  2. SANDOSTATIN [Suspect]
     Active Substance: OCTREOTIDE ACETATE
     Indication: PANCREATIC NEUROENDOCRINE TUMOUR METASTATIC
     Dosage: ONCE/SINGLE (TEST DOSE)
     Route: 058
     Dates: start: 20140424, end: 20140424
  3. SUTENT [Suspect]
     Active Substance: SUNITINIB MALATE
     Indication: CHEMOTHERAPY
     Dosage: UNK
     Route: 065
  4. SANDOSTATIN LAR DEPOT [Suspect]
     Active Substance: OCTREOTIDE ACETATE
     Indication: PANCREATIC NEUROENDOCRINE TUMOUR METASTATIC
     Dosage: 30 MG, QMO (EVERY 4 WEEKS)
     Route: 030
     Dates: start: 20140719

REACTIONS (26)
  - Lung infection [Recovering/Resolving]
  - Lower respiratory tract infection [Recovering/Resolving]
  - Influenza [Recovering/Resolving]
  - Cough [Recovering/Resolving]
  - Abnormal behaviour [Unknown]
  - Blood pressure decreased [Unknown]
  - Weight decreased [Unknown]
  - Blood pressure systolic increased [Unknown]
  - Body temperature decreased [Unknown]
  - Heart rate irregular [Unknown]
  - Vomiting [Unknown]
  - Death [Fatal]
  - Blood glucose increased [Unknown]
  - Nausea [Unknown]
  - Decreased activity [Unknown]
  - Abdominal discomfort [Recovered/Resolved]
  - Tremor [Unknown]
  - Slow speech [Unknown]
  - Abdominal pain [Recovered/Resolved]
  - Pain [Recovered/Resolved]
  - Dysgeusia [Unknown]
  - Swollen tongue [Recovering/Resolving]
  - Diarrhoea [Recovered/Resolved]
  - Confusional state [Unknown]
  - Anxiety [Unknown]
  - Fatigue [Unknown]

NARRATIVE: CASE EVENT DATE: 2014
